FAERS Safety Report 5643699-4 (Version None)
Quarter: 2008Q1

REPORT INFORMATION
  Report Type: 
  Country: None (occurrence: None)
  Receive Date: 20080131
  Receipt Date: 20071224
  Transmission Date: 20080703
  Serious: Yes (Hospitalization)
  Sender: FDA-Public Use
  Company Number: 163-21880-07121331

PATIENT
  Age: 63 Year
  Sex: Female

DRUGS (2)
  1. REVLIMID [Suspect]
     Indication: MULTIPLE MYELOMA
     Dosage: 5 MG,1 IN 1 D, ORAL
     Route: 048
     Dates: start: 20070430
  2. BLOOD TRANSFUSION (BLOOD AND RELATED PRODUCTS) [Concomitant]

REACTIONS (2)
  - HAEMATOCHEZIA [None]
  - PLATELET COUNT DECREASED [None]
